FAERS Safety Report 7054161-9 (Version None)
Quarter: 2010Q4

REPORT INFORMATION
  Report Type: 
  Country: None (occurrence: None)
  Receive Date: 20101015
  Receipt Date: 20101006
  Transmission Date: 20110411
  Serious: Yes (Life-Threatening)
  Sender: FDA-Public Use
  Company Number: URSO-2010-089

PATIENT
  Age: 13 Year
  Sex: Female

DRUGS (31)
  1. URSODEOXYCHOLIC ACID [Suspect]
     Indication: LIVER DISORDER
     Dosage: ORAL
     Route: 048
     Dates: start: 20090101
  2. REMICADE [Suspect]
     Indication: CROHN'S DISEASE
     Dosage: 150 MG, 150 MG, 150 MG, INTRAVENOUS DRIP
     Route: 041
     Dates: start: 20091008, end: 20091008
  3. REMICADE [Suspect]
     Indication: CROHN'S DISEASE
     Dosage: 150 MG, 150 MG, 150 MG, INTRAVENOUS DRIP
     Route: 041
     Dates: start: 20091022, end: 20091022
  4. REMICADE [Suspect]
     Indication: CROHN'S DISEASE
     Dosage: 150 MG, 150 MG, 150 MG, INTRAVENOUS DRIP
     Route: 041
     Dates: start: 20091203, end: 20091203
  5. IMURAN [Suspect]
     Indication: CROHN'S DISEASE
     Dosage: 1 MG/KG, 0.5 MG/KG, 1 MG/KG, ORAL
     Route: 048
     Dates: start: 20090702, end: 20090813
  6. IMURAN [Suspect]
     Indication: CROHN'S DISEASE
     Dosage: 1 MG/KG, 0.5 MG/KG, 1 MG/KG, ORAL
     Route: 048
     Dates: start: 20090814, end: 20090820
  7. IMURAN [Suspect]
     Indication: CROHN'S DISEASE
     Dosage: 1 MG/KG, 0.5 MG/KG, 1 MG/KG, ORAL
     Route: 048
     Dates: start: 20090821, end: 20091105
  8. PREDONINE (PREDNISOLONE) [Suspect]
     Indication: CROHN'S DISEASE
     Dosage: 30 MG, 20 MG, 30 MG, 25 MG, 20 MG, 15 MG, 10 MG 10 MG, 5 MG, ORAL
     Route: 048
     Dates: start: 20090702, end: 20090702
  9. PREDONINE (PREDNISOLONE) [Suspect]
     Indication: CROHN'S DISEASE
     Dosage: 30 MG, 20 MG, 30 MG, 25 MG, 20 MG, 15 MG, 10 MG 10 MG, 5 MG, ORAL
     Route: 048
     Dates: start: 20090717, end: 20090723
  10. PREDONINE (PREDNISOLONE) [Suspect]
     Indication: CROHN'S DISEASE
     Dosage: 30 MG, 20 MG, 30 MG, 25 MG, 20 MG, 15 MG, 10 MG 10 MG, 5 MG, ORAL
     Route: 048
     Dates: start: 20090724, end: 20090803
  11. PREDONINE (PREDNISOLONE) [Suspect]
     Indication: CROHN'S DISEASE
     Dosage: 30 MG, 20 MG, 30 MG, 25 MG, 20 MG, 15 MG, 10 MG 10 MG, 5 MG, ORAL
     Route: 048
     Dates: start: 20090804, end: 20090906
  12. PREDONINE (PREDNISOLONE) [Suspect]
     Indication: CROHN'S DISEASE
     Dosage: 30 MG, 20 MG, 30 MG, 25 MG, 20 MG, 15 MG, 10 MG 10 MG, 5 MG, ORAL
     Route: 048
     Dates: start: 20090907, end: 20090917
  13. PREDONINE (PREDNISOLONE) [Suspect]
     Indication: CROHN'S DISEASE
     Dosage: 30 MG, 20 MG, 30 MG, 25 MG, 20 MG, 15 MG, 10 MG 10 MG, 5 MG, ORAL
     Route: 048
     Dates: start: 20090918, end: 20091022
  14. PREDONINE (PREDNISOLONE) [Suspect]
     Indication: CROHN'S DISEASE
     Dosage: 30 MG, 20 MG, 30 MG, 25 MG, 20 MG, 15 MG, 10 MG 10 MG, 5 MG, ORAL
     Route: 048
     Dates: start: 20091023, end: 20091106
  15. PREDONINE (PREDNISOLONE) [Suspect]
     Indication: CROHN'S DISEASE
     Dosage: 30 MG, 20 MG, 30 MG, 25 MG, 20 MG, 15 MG, 10 MG 10 MG, 5 MG, ORAL
     Route: 048
     Dates: start: 20091110, end: 20091124
  16. PREDONINE (PREDNISOLONE) [Suspect]
     Indication: CROHN'S DISEASE
     Dosage: 30 MG, 20 MG, 30 MG, 25 MG, 20 MG, 15 MG, 10 MG 10 MG, 5 MG, ORAL
     Route: 048
     Dates: start: 20091125
  17. MESALAMINE [Suspect]
     Indication: PRODUCT USED FOR UNKNOWN INDICATION
     Dosage: 60 MG/KG
     Dates: start: 20090603, end: 20090804
  18. PPI [Concomitant]
  19. ELENTAL (PARENTERAL NUTRITION) [Concomitant]
  20. SOLITAX-H [Concomitant]
  21. SOLITA-T NO. 3-G [Concomitant]
  22. AMINO ACID INJ [Concomitant]
  23. INTRALIPOS 10% [Concomitant]
  24. NOVORAPID (INSULIN ASPART(GENETICAL RECOMBINATION)) [Concomitant]
  25. LEVOTHYROXINE SODIUM [Concomitant]
  26. ASPARA-K (L-ASPARTATE POTASSIUM) [Concomitant]
  27. BIO-THREE (CLOSTRIDIUM BUTYRICUM COMBINED DRUG) [Concomitant]
  28. BIOSTAR M (FAMOTIDINE) [Concomitant]
  29. ALFAROL (ALFACALCIDOL) [Concomitant]
  30. COLONEL (POLYCARBOPHIL CALCIUM) [Concomitant]
  31. PENIES (LIDOCAINE) [Concomitant]

REACTIONS (5)
  - CONDITION AGGRAVATED [None]
  - DEVICE RELATED INFECTION [None]
  - DIARRHOEA [None]
  - ENCEPHALOPATHY [None]
  - RASH [None]
